FAERS Safety Report 26180279 (Version 1)
Quarter: 2025Q4

REPORT INFORMATION
  Report Type: Spontaneous
  Country: EU (occurrence: EU)
  Receive Date: 20251219
  Receipt Date: 20251219
  Transmission Date: 20260117
  Serious: Yes (Other)
  Sender: TEVA
  Company Number: None

PATIENT
  Age: 37 Year
  Sex: Male
  Weight: 58 kg

DRUGS (29)
  1. PACLITAXEL [Suspect]
     Active Substance: PACLITAXEL
     Indication: Lung adenocarcinoma
     Dosage: TIME INTERVAL: TOTAL: 40 MG/M?
     Route: 042
     Dates: start: 20240328, end: 20240328
  2. PACLITAXEL [Suspect]
     Active Substance: PACLITAXEL
     Indication: Lung adenocarcinoma
     Dosage: TIME INTERVAL: TOTAL: 40 MG/M?
     Route: 042
     Dates: start: 20240321, end: 20240321
  3. PACLITAXEL [Suspect]
     Active Substance: PACLITAXEL
     Indication: Lung adenocarcinoma
     Dosage: TIME INTERVAL: TOTAL: 200 MG/M?
     Route: 042
     Dates: start: 20240215, end: 20240215
  4. PACLITAXEL [Suspect]
     Active Substance: PACLITAXEL
     Indication: Lung adenocarcinoma
     Dosage: TIME INTERVAL: TOTAL: 40 MG/M?
     Route: 042
     Dates: start: 20240315, end: 20240315
  5. METHADONE [Concomitant]
     Active Substance: METHADONE HYDROCHLORIDE
     Indication: Cancer pain
     Dosage: 60 MG/DAY
     Route: 048
     Dates: start: 20240412
  6. METHADONE [Concomitant]
     Active Substance: METHADONE HYDROCHLORIDE
     Indication: Cancer pain
     Dosage: 15 MG IF NEEDED
     Route: 048
     Dates: start: 20240412
  7. METHADONE [Concomitant]
     Active Substance: METHADONE HYDROCHLORIDE
     Indication: Cancer pain
     Dosage: 15 MG MORNING AND EVENING
     Route: 048
     Dates: start: 20240221, end: 20240412
  8. METHADONE [Concomitant]
     Active Substance: METHADONE HYDROCHLORIDE
     Indication: Cancer pain
     Route: 042
     Dates: start: 20240221, end: 20240412
  9. KETAMINE [Concomitant]
     Active Substance: KETAMINE
     Indication: Product used for unknown indication
     Dosage: PCA 290 MG
     Route: 042
     Dates: start: 20240221, end: 20240412
  10. AMITRIPTYLINE HYDROCHLORIDE [Concomitant]
     Active Substance: AMITRIPTYLINE HYDROCHLORIDE
     Indication: Product used for unknown indication
     Dosage: 5 DROPS IN THE EVENING, 40 MG/ML, ORAL SOLUTION
     Route: 048
     Dates: start: 20240208, end: 20240412
  11. ACETAMINOPHEN [Concomitant]
     Active Substance: ACETAMINOPHEN
     Indication: Pain
     Dosage: 1 G IF NEEDED
     Route: 048
     Dates: start: 20240129, end: 20240412
  12. ACETAMINOPHEN [Concomitant]
     Active Substance: ACETAMINOPHEN
     Indication: Pain
     Dosage: 500 MG IF NEEDED
     Route: 048
     Dates: start: 20240412
  13. GABAPENTIN [Concomitant]
     Active Substance: GABAPENTIN
     Indication: Pain
     Dosage: 2700 MG/DAY
     Route: 048
     Dates: start: 20240412
  14. GABAPENTIN [Concomitant]
     Active Substance: GABAPENTIN
     Indication: Pain
     Dosage: 2700 MG/DAY
     Route: 048
     Dates: start: 20240129, end: 20240208
  15. GABAPENTIN [Concomitant]
     Active Substance: GABAPENTIN
     Indication: Pain
     Dosage: 3600 MG/DAY
     Route: 048
     Dates: start: 20240208, end: 20240412
  16. LOXAPINE [Concomitant]
     Active Substance: LOXAPINE
     Indication: Psychotic disorder
     Dosage: 25 MG/DAY + 10 MG AT NIGHT IF INSOMNIA
     Route: 048
     Dates: start: 20240221, end: 20240322
  17. LOXAPINE [Concomitant]
     Active Substance: LOXAPINE
     Indication: Psychotic disorder
     Dosage: 5 MG IF NEEDED
     Route: 048
     Dates: start: 20240322
  18. APREPITANT [Concomitant]
     Active Substance: APREPITANT
     Indication: Prophylactic chemotherapy
     Dosage: 125 MG TOTAL, DAY 1 CHEMOTHERAPY
     Route: 048
     Dates: start: 20240315, end: 20240315
  19. APREPITANT [Concomitant]
     Active Substance: APREPITANT
     Indication: Prophylactic chemotherapy
     Dosage: 80 MG ON DAYS 2 AND 3 POST-CHEMOTHERAPY
     Route: 048
     Dates: start: 20240316, end: 20240317
  20. CARBOPLATIN [Suspect]
     Active Substance: CARBOPLATIN
     Indication: Lung adenocarcinoma
     Dosage: AUC2 C1J15
     Route: 042
     Dates: start: 20240328, end: 20240328
  21. CARBOPLATIN [Suspect]
     Active Substance: CARBOPLATIN
     Indication: Lung adenocarcinoma
     Dosage: AUC2 C1J8
     Route: 042
     Dates: start: 20240321, end: 20240321
  22. CARBOPLATIN [Suspect]
     Active Substance: CARBOPLATIN
     Indication: Lung adenocarcinoma
     Dosage: TIME INTERVAL: TOTAL: AUC5
     Route: 042
     Dates: start: 20240215, end: 20240215
  23. CARBOPLATIN [Suspect]
     Active Substance: CARBOPLATIN
     Indication: Lung adenocarcinoma
     Dosage: AUC2 C1J1
     Route: 042
     Dates: start: 20240315, end: 20240315
  24. ALPRAZOLAM [Concomitant]
     Active Substance: ALPRAZOLAM
     Indication: Anxiety
     Dosage: 0.25 MG IF NEEDED
     Route: 048
     Dates: start: 20240221
  25. ONDANSETRON [Concomitant]
     Active Substance: ONDANSETRON
     Indication: Prophylactic chemotherapy
     Dosage: 8 MG MORNING AND EVENING ON DAY 1 OF CHEMOTHERAPY
     Route: 048
     Dates: start: 20240315, end: 20240315
  26. SOLUPRED [Concomitant]
     Indication: Product used for unknown indication
     Dosage: 40 MG IN THE MORNING,
     Route: 065
     Dates: start: 20240208, end: 20240412
  27. SKENAN [Concomitant]
     Active Substance: MORPHINE SULFATE
     Indication: Pain
     Dosage: 30 MG LP ONE MORNING AND ONE EVENING, PROLONGED RELEASE MICROGRANULES IN CAPSULE
     Route: 048
     Dates: start: 20240129, end: 20240412
  28. MORPHINE SULFATE [Concomitant]
     Active Substance: MORPHINE SULFATE
     Indication: Pain
     Dosage: 10 MG EVERY 4 HOURS IF NEEDED
     Route: 048
     Dates: start: 20240129, end: 20240412
  29. KEYTRUDA [Suspect]
     Active Substance: PEMBROLIZUMAB
     Indication: Lung adenocarcinoma
     Dosage: TIME INTERVAL: TOTAL
     Route: 042
     Dates: start: 20240215, end: 20240215

REACTIONS (1)
  - Hepatic cytolysis [Recovered/Resolved]

NARRATIVE: CASE EVENT DATE: 20240305
